FAERS Safety Report 9995256 (Version 1)
Quarter: 2014Q1

REPORT INFORMATION
  Report Type: Spontaneous
  Country: US (occurrence: None)
  Receive Date: 20140306
  Receipt Date: 20140306
  Transmission Date: 20141002
  Serious: Yes (Hospitalization)
  Sender: FDA-Public Use
  Company Number: 2209198

PATIENT
  Age: 85 Year
  Sex: Female
  Weight: 57 kg

DRUGS (3)
  1. LIDOCAINE HCL [Suspect]
     Indication: URINARY TRACT INFECTION
     Route: 030
     Dates: start: 201310
  2. LIDOCAINE HCL [Suspect]
     Indication: SEPSIS
     Route: 030
     Dates: start: 201310
  3. CHOLESTEROL [Concomitant]

REACTIONS (6)
  - Abnormal behaviour [None]
  - Product quality issue [None]
  - Mental disorder [None]
  - Product contamination physical [None]
  - Wrong technique in drug usage process [None]
  - Incorrect product storage [None]
